FAERS Safety Report 4959007-8 (Version None)
Quarter: 2006Q1

REPORT INFORMATION
  Report Type: 
  Country: None (occurrence: None)
  Receive Date: 20060328
  Receipt Date: 20060316
  Transmission Date: 20060701
  Serious: Yes (Other)
  Sender: FDA-Public Use
  Company Number: 223134

PATIENT
  Age: 6 Year
  Sex: Male

DRUGS (1)
  1. NUTROPIN AQ [Suspect]
     Indication: RENAL FAILURE
     Dates: start: 20050301

REACTIONS (2)
  - CARDIOMEGALY [None]
  - CONDITION AGGRAVATED [None]
